FAERS Safety Report 7191768-2 (Version None)
Quarter: 2010Q4

REPORT INFORMATION
  Report Type: 
  Country: None (occurrence: None)
  Receive Date: 20101223
  Receipt Date: 20100819
  Transmission Date: 20110411
  Serious: No
  Sender: FDA-Public Use
  Company Number: US-AMGEN-KDL432625

PATIENT

DRUGS (1)
  1. ENBREL [Suspect]
     Indication: RHEUMATOID ARTHRITIS
     Dosage: 50 MG, QWK
     Route: 058
     Dates: start: 20041201

REACTIONS (8)
  - BACTERIAL TEST [None]
  - BLADDER SPASM [None]
  - DRUG INEFFECTIVE [None]
  - DYSPHONIA [None]
  - DYSURIA [None]
  - FATIGUE [None]
  - INJECTION SITE ERYTHEMA [None]
  - SINUSITIS [None]
